FAERS Safety Report 19252051 (Version 1)
Quarter: 2021Q2

REPORT INFORMATION
  Report Type: Spontaneous
  Country: US (occurrence: US)
  Receive Date: 20210512
  Receipt Date: 20210512
  Transmission Date: 20210717
  Serious: Yes (Hospitalization)
  Sender: FDA-Public Use
  Company Number: None

PATIENT
  Age: 62 Year
  Sex: Male

DRUGS (12)
  1. LEFLUNOMIDE. [Concomitant]
     Active Substance: LEFLUNOMIDE
  2. PREDNISONE. [Concomitant]
     Active Substance: PREDNISONE
  3. ATORVASTATIN [Concomitant]
     Active Substance: ATORVASTATIN
  4. IPRATROPIUM [Concomitant]
     Active Substance: IPRATROPIUM
  5. SPIRIVA SPR [Concomitant]
  6. CEFUROXIME. [Concomitant]
     Active Substance: CEFUROXIME
  7. STIOLTO RESPIMAT [Concomitant]
     Active Substance: OLODATEROL HYDROCHLORIDE\TIOTROPIUM BROMIDE MONOHYDRATE
  8. VALACYCLOVIR [Concomitant]
     Active Substance: VALACYCLOVIR HYDROCHLORIDE
  9. NYSTATIN. [Concomitant]
     Active Substance: NYSTATIN
  10. XELJANZ XR [Suspect]
     Active Substance: TOFACITINIB CITRATE
     Indication: PRODUCT USED FOR UNKNOWN INDICATION
     Route: 048
     Dates: start: 20210202
  11. HC VALERATE CRE [Concomitant]
  12. MONTELUKAST [Concomitant]
     Active Substance: MONTELUKAST SODIUM

REACTIONS (2)
  - Chronic obstructive pulmonary disease [None]
  - Therapy interrupted [None]

NARRATIVE: CASE EVENT DATE: 20210428
